FAERS Safety Report 20485364 (Version 1)
Quarter: 2022Q1

REPORT INFORMATION
  Report Type: Spontaneous
  Country: US (occurrence: None)
  Receive Date: 20220217
  Receipt Date: 20220217
  Transmission Date: 20220423
  Serious: Yes (Other)
  Sender: FDA-Public Use
  Company Number: None

PATIENT
  Age: 65 Year
  Sex: Female

DRUGS (2)
  1. SPRYCEL [Suspect]
     Active Substance: DASATINIB
     Indication: Leukaemia
     Dosage: FREQUENCY : DAILY;?
     Route: 048
     Dates: start: 20210910
  2. SPRYCEL [Concomitant]
     Active Substance: DASATINIB
     Dates: start: 20200910

REACTIONS (3)
  - Haemoptysis [None]
  - Blister [None]
  - Pain [None]

NARRATIVE: CASE EVENT DATE: 20220217
